FAERS Safety Report 8759560 (Version 6)
Quarter: 2013Q3

REPORT INFORMATION
  Report Type: Report from Study
  Country: DE (occurrence: DE)
  Receive Date: 20120829
  Receipt Date: 20130814
  Transmission Date: 20140515
  Serious: Yes (Other)
  Sender: FDA-Public Use
  Company Number: PHHY2012DE074466

PATIENT
  Sex: Female
  Weight: 65 kg

DRUGS (3)
  1. FTY 720 [Suspect]
     Indication: MULTIPLE SCLEROSIS
     Dosage: 0.5 MG, QD
     Route: 048
     Dates: start: 20110621, end: 20111031
  2. FTY 720 [Suspect]
     Dosage: 0.5 MG, QD
     Route: 048
     Dates: start: 20120503, end: 20120911
  3. FTY 720 [Suspect]
     Dosage: 0.5 MG, QOD
     Route: 048

REACTIONS (2)
  - Cataract [Unknown]
  - Macular oedema [Recovered/Resolved]
